FAERS Safety Report 8996509 (Version 3)
Quarter: 2013Q2

REPORT INFORMATION
  Report Type: Spontaneous
  Country: US (occurrence: US)
  Receive Date: 20130104
  Receipt Date: 20130404
  Transmission Date: 20140414
  Serious: No
  Sender: FDA-Public Use
  Company Number: US-PFIZER INC-2013001596

PATIENT
  Age: 75 Year
  Sex: Male
  Weight: 86.17 kg

DRUGS (16)
  1. SUTENT [Suspect]
     Indication: RENAL CELL CARCINOMA
     Dosage: 50 MG, 1X/DAY, 28 DAYS ON, 14 DAY OFF
     Route: 048
     Dates: start: 20120615
  2. ASPIRIN [Concomitant]
     Dosage: 81 MG, ONCE A DAY
  3. SIMVASTATIN [Concomitant]
     Indication: BLOOD CHOLESTEROL INCREASED
     Dosage: 20 MG, ONCE A DAY
  4. AMLODIPINE [Concomitant]
     Dosage: 10 MG, ONCE A DAY
  5. LANTUS [Concomitant]
     Indication: DIABETES MELLITUS
     Dosage: 20 IU, UNK
  6. LISINOPRIL [Concomitant]
     Dosage: 5 MG, ONCE A DAY
  7. ZOFRAN [Concomitant]
     Dosage: AS NEEDED
  8. IMODIUM [Concomitant]
     Dosage: UNK, 1X/DAY (DAILY)
  9. IMODIUM [Concomitant]
     Dosage: UNK, AS NEEDED
  10. LOPERAMIDE [Concomitant]
     Dosage: UNK
  11. OXYCODONE [Concomitant]
     Dosage: UNK
  12. BYSTOLIC [Concomitant]
     Dosage: UNK
  13. VITAMIN D [Concomitant]
     Dosage: UNK, MONTHLY
  14. VITAMIN B1 [Concomitant]
     Dosage: UNK
  15. ASA [Concomitant]
     Dosage: UNK
  16. NORVASC [Concomitant]
     Dosage: UNK

REACTIONS (8)
  - Diarrhoea [Recovering/Resolving]
  - Bowel movement irregularity [Unknown]
  - Gastrooesophageal reflux disease [Unknown]
  - Decreased appetite [Recovering/Resolving]
  - Dysgeusia [Recovering/Resolving]
  - Pruritus [Unknown]
  - Pain [Unknown]
  - Asthenia [Unknown]
